FAERS Safety Report 7946395-3 (Version None)
Quarter: 2011Q4

REPORT INFORMATION
  Report Type: 
  Country: None (occurrence: None)
  Receive Date: 20111129
  Receipt Date: 20111121
  Transmission Date: 20120403
  Serious: Yes (Disabling, Other)
  Sender: FDA-Public Use
  Company Number: GB-MERCK-1111GBR00047

PATIENT
  Age: 79 Year
  Sex: Female
  Weight: 62 kg

DRUGS (7)
  1. BISOPROLOL [Concomitant]
     Route: 065
     Dates: start: 20110607
  2. CHLORHEXIDINE GLUCONATE [Concomitant]
     Route: 065
     Dates: start: 20111026
  3. FOSAMAX [Suspect]
     Route: 048
     Dates: start: 20111026
  4. FUROSEMIDE [Concomitant]
     Route: 065
     Dates: start: 20110914
  5. FENTANYL [Concomitant]
     Route: 065
     Dates: start: 20110713
  6. PREDNISOLONE [Concomitant]
     Route: 065
     Dates: start: 20110914
  7. BECLOMETHASONE DIPROPIONATE [Concomitant]
     Route: 065
     Dates: start: 20110713, end: 20111021

REACTIONS (2)
  - OSTEONECROSIS OF JAW [None]
  - OSTEONECROSIS [None]
